FAERS Safety Report 4359216-5 (Version None)
Quarter: 2004Q2

REPORT INFORMATION
  Report Type: 
  Country: None (occurrence: None)
  Receive Date: 20040512
  Receipt Date: 20040505
  Transmission Date: 20050107
  Serious: No
  Sender: FDA-Public Use
  Company Number: 04H-083-0259869-00

PATIENT
  Sex: 0

DRUGS (5)
  1. LIDOCAINE HYDROCHLORIDE [Suspect]
     Indication: ANALGESIC EFFECT
     Dosage: 20 MG, ONCE, INTRAVENOUS
     Route: 042
  2. PROPOFOL [Suspect]
     Indication: ANAESTHESIA
     Dosage: 180 MG, 180 MG ONCE, INTRAVENOUS
     Route: 042
  3. SODIUM CHLORIDE INJ [Concomitant]
  4. ATROPINE [Concomitant]
  5. EMLA [Concomitant]

REACTIONS (1)
  - OXYGEN SATURATION DECREASED [None]
